FAERS Safety Report 4312212-6 (Version None)
Quarter: 2004Q1

REPORT INFORMATION
  Report Type: 
  Country: None (occurrence: None)
  Receive Date: 20040303
  Receipt Date: 20040223
  Transmission Date: 20041129
  Serious: Yes (Hospitalization)
  Sender: FDA-Public Use
  Company Number: TPA2004A00076

PATIENT
  Age: 50 Year
  Sex: Male
  Weight: 117.9352 kg

DRUGS (8)
  1. ACTOS [Suspect]
     Indication: DIABETES MELLITUS NON-INSULIN-DEPENDENT
     Dosage: 30 MG, 1 IN 1 D, PER ORAL
     Route: 048
     Dates: start: 20010101
  2. HYDROCHLOROTHIAZIDE [Concomitant]
  3. HUMULIN R (INSULIN HUMAN) (17 IU (INTERNATIONAL INJECTION) [Concomitant]
  4. HUMULIN NPH (INSULIN HUMAN INJECTION, ISOPHANE) (INJECTION) [Concomitant]
  5. COZAAR (LOSARTAN POTASSIUM) (50 MILLIGRAMS) [Concomitant]
  6. NITROGLYCERIN (GLYCERYL TRINITRATE) (PILL) [Concomitant]
  7. ZOCOR (SIMVASTATIN) (40 MILLIGRAM) [Concomitant]
  8. ATENOLOL (ATENOLOL) (100 MILLIGRAM) [Concomitant]

REACTIONS (9)
  - ASTHENIA [None]
  - CARPAL TUNNEL SYNDROME [None]
  - CONDITION AGGRAVATED [None]
  - DIABETES MELLITUS [None]
  - JOINT INJURY [None]
  - LIMB INJURY [None]
  - MUSCLE INJURY [None]
  - SWELLING [None]
  - TENDONITIS [None]
